FAERS Safety Report 10166123 (Version 3)
Quarter: 2015Q4

REPORT INFORMATION
  Report Type: Spontaneous
  Country: US (occurrence: US)
  Receive Date: 20140512
  Receipt Date: 20151006
  Transmission Date: 20160304
  Serious: Yes (Hospitalization, Other)
  Sender: FDA-Public Use
  Company Number: US-ROCHE-1395016

PATIENT
  Age: 39 Year
  Sex: Female
  Weight: 66.74 kg

DRUGS (1)
  1. XOLAIR [Suspect]
     Active Substance: OMALIZUMAB
     Indication: ASTHMA
     Dosage: 1-2 ML
     Route: 058
     Dates: start: 20140320, end: 20140320

REACTIONS (6)
  - Blood pressure decreased [Recovered/Resolved]
  - Flank pain [Recovered/Resolved]
  - Lung disorder [Recovered/Resolved]
  - Nausea [Recovered/Resolved]
  - Feeling cold [Recovered/Resolved]
  - Chills [Recovered/Resolved]

NARRATIVE: CASE EVENT DATE: 20140320
